FAERS Safety Report 7378301-7 (Version None)
Quarter: 2011Q1

REPORT INFORMATION
  Report Type: 
  Country: None (occurrence: None)
  Receive Date: 20110328
  Receipt Date: 20110316
  Transmission Date: 20110831
  Serious: Yes (Hospitalization)
  Sender: FDA-Public Use
  Company Number: US-JNJFOC-20040602470

PATIENT
  Age: 81 Year
  Sex: Male

DRUGS (5)
  1. RISPERDAL [Suspect]
     Indication: MEDICATION ERROR
     Route: 048
  2. SINEMET [Concomitant]
     Dosage: 25/100 THREE TIMES DAILY  50/200 AT BEDTIME
  3. TERAZOSIN [Concomitant]
  4. REQUIP [Suspect]
     Indication: PARKINSON'S DISEASE
     Dosage: STOPPED IN ERROR
     Route: 065
  5. NEURONTIN [Concomitant]

REACTIONS (11)
  - CEREBRAL ATROPHY [None]
  - URINARY INCONTINENCE [None]
  - SYNCOPE [None]
  - FALL [None]
  - HALLUCINATION [None]
  - RHABDOMYOLYSIS [None]
  - ASTHENIA [None]
  - FATIGUE [None]
  - MEDICATION ERROR [None]
  - PARKINSON'S DISEASE [None]
  - EXTRAPYRAMIDAL DISORDER [None]
